FAERS Safety Report 4528356-X (Version None)
Quarter: 2004Q4

REPORT INFORMATION
  Report Type: 
  Country: None (occurrence: None)
  Receive Date: 20041130
  Receipt Date: 20040824
  Transmission Date: 20050328
  Serious: No
  Sender: FDA-Public Use
  Company Number: WAES 0408USA01887

PATIENT
  Sex: Male

DRUGS (11)
  1. ZETIA [Suspect]
     Indication: BLOOD CHOLESTEROL INCREASED
     Dosage: 10 MG/DAILY/PO
     Route: 048
     Dates: start: 20040803
  2. ATACAND [Concomitant]
  3. LOPRESSOR [Concomitant]
  4. PLAVIX [Concomitant]
  5. PROCARDIA [Concomitant]
  6. SYNTHROID [Concomitant]
  7. ZOCOR [Concomitant]
  8. ASPIRIN [Concomitant]
  9. CLONIDINE [Concomitant]
  10. COLCHICINE [Concomitant]
  11. ISOSORBIDE [Concomitant]

REACTIONS (1)
  - ECCHYMOSIS [None]
